FAERS Safety Report 7649843-1 (Version None)
Quarter: 2011Q3

REPORT INFORMATION
  Report Type: 
  Country: None (occurrence: None)
  Receive Date: 20110727
  Receipt Date: 20110721
  Transmission Date: 20111222
  Serious: Yes (Death, Other)
  Sender: FDA-Public Use
  Company Number: 2011SP014807

PATIENT

DRUGS (1)
  1. NUVARING [Suspect]
     Indication: CONTRACEPTION
     Dates: start: 20080618, end: 20090410

REACTIONS (15)
  - MUSCULOSKELETAL PAIN [None]
  - URINARY INCONTINENCE [None]
  - DEEP VEIN THROMBOSIS [None]
  - BREAST TENDERNESS [None]
  - ANALGESIC DRUG LEVEL INCREASED [None]
  - CARDIO-RESPIRATORY ARREST [None]
  - UNRESPONSIVE TO STIMULI [None]
  - PULMONARY OEDEMA [None]
  - HYPERTENSIVE HEART DISEASE [None]
  - AMENORRHOEA [None]
  - PULMONARY INFARCTION [None]
  - DRUG ABUSE [None]
  - PULMONARY EMBOLISM [None]
  - ABDOMINAL PAIN LOWER [None]
  - PULMONARY CONGESTION [None]
